FAERS Safety Report 23673380 (Version 2)
Quarter: 2024Q2

REPORT INFORMATION
  Report Type: Spontaneous
  Country: US (occurrence: US)
  Receive Date: 20240326
  Receipt Date: 20240401
  Transmission Date: 20240716
  Serious: Yes (Hospitalization)
  Sender: FDA-Public Use
  Company Number: US-KARYOPHARM-2024KPT000448

PATIENT

DRUGS (21)
  1. XPOVIO [Suspect]
     Active Substance: SELINEXOR
     Indication: Plasma cell myeloma
     Dosage: 80 MG, WEEKLY
     Route: 048
     Dates: start: 20240110
  2. ALBUTEROL SULFATE [Concomitant]
     Active Substance: ALBUTEROL SULFATE
  3. APREPITANT [Concomitant]
     Active Substance: APREPITANT
  4. ASMANEX [Concomitant]
     Active Substance: MOMETASONE FUROATE
  5. CRESTOR [Concomitant]
     Active Substance: ROSUVASTATIN CALCIUM
  6. DECADRON [Concomitant]
     Active Substance: DEXAMETHASONE
  7. ELIQUIS [Concomitant]
     Active Substance: APIXABAN
  8. FLUTICASONE [Concomitant]
     Active Substance: FLUTICASONE
  9. LANOXIN [Concomitant]
     Active Substance: DIGOXIN
  10. LANTUS [Concomitant]
     Active Substance: INSULIN GLARGINE
  11. LASIX FAIBLE [Concomitant]
  12. METOPROLOL [Concomitant]
     Active Substance: METOPROLOL
  13. NITROSTAT [Concomitant]
     Active Substance: NITROGLYCERIN
  14. NOVOLOG [Concomitant]
     Active Substance: INSULIN ASPART
  15. OLANZAPINE [Concomitant]
     Active Substance: OLANZAPINE
  16. OMEPRAZOLE [Concomitant]
     Active Substance: OMEPRAZOLE
  17. PROCHLORPERAZINE [Concomitant]
     Active Substance: PROCHLORPERAZINE
  18. TRESIBA [Concomitant]
     Active Substance: INSULIN DEGLUDEC
  19. XOPENEX [Concomitant]
     Active Substance: LEVALBUTEROL HYDROCHLORIDE
  20. ZOFRAN [Concomitant]
     Active Substance: ONDANSETRON HYDROCHLORIDE
  21. POTASSIUM [Concomitant]
     Active Substance: POTASSIUM

REACTIONS (3)
  - Pneumonia [Unknown]
  - Blood glucose increased [Unknown]
  - Gastroenteritis viral [Unknown]

NARRATIVE: CASE EVENT DATE: 20240201
